FAERS Safety Report 9655141 (Version 2)
Quarter: 2013Q4

REPORT INFORMATION
  Report Type: Spontaneous
  Country: US (occurrence: US)
  Receive Date: 20131029
  Receipt Date: 20131029
  Transmission Date: 20140711
  Serious: No
  Sender: FDA-Public Use
  Company Number: US-PURDUE-USA-2012-0092523

PATIENT
  Sex: Male
  Weight: 68.03 kg

DRUGS (6)
  1. OXYCONTIN (NDA 22-272) [Suspect]
     Indication: BACK PAIN
     Dosage: 20 MG, UNK
     Route: 048
     Dates: start: 201208
  2. OXYCONTIN (NDA 22-272) [Suspect]
     Indication: ARTHRALGIA
  3. OXYCONTIN (NDA 22-272) [Suspect]
     Indication: RHEUMATOID ARTHRITIS
  4. LEXAPRO [Concomitant]
     Indication: PRODUCT USED FOR UNKNOWN INDICATION
  5. INTERFERON [Concomitant]
     Indication: PRODUCT USED FOR UNKNOWN INDICATION
  6. RIBAVIRIN [Concomitant]
     Indication: PRODUCT USED FOR UNKNOWN INDICATION

REACTIONS (2)
  - Medication residue present [Unknown]
  - Drug effect decreased [Not Recovered/Not Resolved]
